FAERS Safety Report 13279767 (Version 1)
Quarter: 2017Q1

REPORT INFORMATION
  Report Type: Spontaneous
  Country: US (occurrence: US)
  Receive Date: 20170228
  Receipt Date: 20170228
  Transmission Date: 20170428
  Serious: Yes (Life-Threatening, Hospitalization, Disabling, Other)
  Sender: FDA-Public Use
  Company Number: None

PATIENT
  Age: 19 Year
  Sex: Male
  Weight: 65.7 kg

DRUGS (2)
  1. MULTIVITAMIN [Concomitant]
     Active Substance: VITAMINS
  2. MIRALAX [Suspect]
     Active Substance: POLYETHYLENE GLYCOL 3350
     Indication: CONSTIPATION
     Route: 048
     Dates: start: 20000201, end: 20151112

REACTIONS (15)
  - Seizure [None]
  - Depression [None]
  - Tic [None]
  - Blood sodium decreased [None]
  - Aortic dilatation [None]
  - Incorrect drug administration duration [None]
  - Anxiety [None]
  - Dehydration [None]
  - Mitral valve prolapse [None]
  - Cardiac disorder [None]
  - Suicidal ideation [None]
  - Anger [None]
  - Blood glucose decreased [None]
  - Long QT syndrome [None]
  - Product use issue [None]
